FAERS Safety Report 4806335-2 (Version None)
Quarter: 2005Q4

REPORT INFORMATION
  Report Type: 
  Country: None (occurrence: None)
  Receive Date: 20051021
  Receipt Date: 20050613
  Transmission Date: 20060501
  Serious: Yes (Hospitalization)
  Sender: FDA-Public Use
  Company Number: US-ROCHE-407659

PATIENT
  Age: 42 Year
  Sex: Male
  Weight: 91.2 kg

DRUGS (18)
  1. PEGASYS [Suspect]
     Indication: HEPATITIS C
     Dosage: COMPLETED TWELVE MONTHS OF THERAPY.
     Route: 058
     Dates: start: 20030615, end: 20040624
  2. COPEGUS [Suspect]
     Indication: HEPATITIS C
     Dosage: 600 MG IN THE AM, 400 MG IN THE PM, COMPLETED TWELVE MONTHS OF THERAPY.
     Route: 048
     Dates: start: 20030615, end: 20040624
  3. PROCRIT [Suspect]
     Indication: ANAEMIA
     Route: 058
     Dates: start: 20030828, end: 20031023
  4. PROCRIT [Suspect]
     Route: 058
     Dates: start: 20031023, end: 20040227
  5. PROCRIT [Suspect]
     Route: 058
     Dates: start: 20040227, end: 20040510
  6. PROCRIT [Suspect]
     Route: 058
     Dates: start: 20040510, end: 20040802
  7. PROCRIT [Suspect]
     Route: 058
     Dates: start: 20040820, end: 20041115
  8. NEUPOGEN [Concomitant]
     Dosage: JUL 2003, STARTING WITH 300 MCG WEEKLY, 18 SEP 2003, INCREASING TO 300 MCG TWICE WEEKLY, AND 27 FEB+
     Route: 058
     Dates: start: 20030715
  9. ZOLPIDEM TARTRATE [Concomitant]
  10. VITAMINS NOS [Concomitant]
  11. CITALOPRAM [Concomitant]
  12. ASPIRIN [Concomitant]
     Dates: end: 20040802
  13. PERIACTIN [Concomitant]
  14. FOLIC ACID [Concomitant]
     Dosage: INCREASED 02 AUG 2004 EST.
     Route: 048
  15. VITAMIN B-12 [Concomitant]
     Route: 030
  16. ENSURE [Concomitant]
  17. VIAGRA [Concomitant]
  18. HYDROCORTISONE [Concomitant]

REACTIONS (22)
  - ANAEMIA [None]
  - ANOREXIA [None]
  - ANTI-ERYTHROPOIETIN ANTIBODY POSITIVE [None]
  - APLASIA PURE RED CELL [None]
  - CHEST DISCOMFORT [None]
  - CHILLS [None]
  - DIZZINESS [None]
  - DYSPNOEA EXERTIONAL [None]
  - ERECTILE DYSFUNCTION [None]
  - FATIGUE [None]
  - HEADACHE [None]
  - HYPERHIDROSIS [None]
  - INSOMNIA [None]
  - MALAISE [None]
  - MYALGIA [None]
  - NEUTROPENIA [None]
  - PHARYNGOLARYNGEAL PAIN [None]
  - PYREXIA [None]
  - RASH [None]
  - RETICULOCYTOPENIA [None]
  - THERAPEUTIC RESPONSE DECREASED [None]
  - WEIGHT DECREASED [None]
